FAERS Safety Report 7077588-8 (Version None)
Quarter: 2010Q4

REPORT INFORMATION
  Report Type: 
  Country: None (occurrence: None)
  Receive Date: 20101101
  Receipt Date: 20101021
  Transmission Date: 20110411
  Serious: Yes (Life-Threatening, Hospitalization, Other)
  Sender: FDA-Public Use
  Company Number: JP-CELGENEUS-087-21880-10102086

PATIENT
  Sex: Female

DRUGS (23)
  1. REVLIMID [Suspect]
     Indication: MULTIPLE MYELOMA
     Route: 048
     Dates: start: 20100803, end: 20100823
  2. REVLIMID [Suspect]
     Route: 048
     Dates: start: 20100831, end: 20100905
  3. REVLIMID [Suspect]
     Route: 048
     Dates: start: 20100921, end: 20100930
  4. FLUCONARL [Concomitant]
     Indication: PROPHYLAXIS
     Route: 048
     Dates: start: 20100622, end: 20100806
  5. OMEPRAZOLE [Concomitant]
     Indication: PROPHYLAXIS
     Route: 048
     Dates: start: 20080426, end: 20100914
  6. 8-HOUR BAYER [Concomitant]
     Indication: PROPHYLAXIS
     Route: 048
     Dates: start: 20100803, end: 20100804
  7. BONALON [Concomitant]
     Indication: PROPHYLAXIS
     Route: 048
     Dates: start: 20081006
  8. BAKTAR [Concomitant]
     Indication: PROPHYLAXIS
     Route: 048
     Dates: start: 20080428
  9. CALONAL [Concomitant]
     Indication: MULTIPLE MYELOMA
     Route: 048
     Dates: start: 20100705, end: 20100914
  10. FIRSTCIN [Concomitant]
     Indication: RENAL FAILURE CHRONIC
     Route: 051
     Dates: start: 20100807, end: 20100810
  11. FUNGUARD [Concomitant]
     Indication: PROPHYLAXIS
     Route: 051
     Dates: start: 20100807, end: 20100820
  12. OMEGACIN [Concomitant]
     Indication: RENAL FAILURE CHRONIC
     Route: 051
     Dates: start: 20100810, end: 20100823
  13. PENTAZOCINE LACTATE [Concomitant]
     Indication: MULTIPLE MYELOMA
     Route: 051
     Dates: start: 20100807, end: 20100810
  14. SOLU-CORTEF [Concomitant]
     Indication: RENAL FAILURE CHRONIC
     Route: 051
     Dates: start: 20100811, end: 20100819
  15. BFLUIID [Concomitant]
     Indication: MULTIPLE MYELOMA
     Dosage: 500-1000ML
     Route: 051
     Dates: start: 20100807, end: 20100823
  16. SOLDEM 1 [Concomitant]
     Indication: MULTIPLE MYELOMA
     Route: 051
     Dates: start: 20100720, end: 20100807
  17. SOLDEM 1 [Concomitant]
     Dosage: 500-1000ML
     Route: 051
     Dates: start: 20100915
  18. CRAVIT [Concomitant]
     Indication: PROPHYLAXIS
     Route: 048
     Dates: start: 20100823
  19. CRAVIT [Concomitant]
     Route: 048
     Dates: start: 20100823, end: 20100903
  20. CRAVIT [Concomitant]
     Route: 048
     Dates: start: 20101009
  21. LANSOPRAZOLE [Concomitant]
     Indication: PROPHYLAXIS
     Route: 048
     Dates: start: 20100915
  22. LASIX [Concomitant]
     Indication: MULTIPLE MYELOMA
     Route: 048
     Dates: start: 20100922, end: 20101012
  23. LASIX [Concomitant]
     Indication: CARDIAC FAILURE
     Route: 051
     Dates: start: 20101013

REACTIONS (5)
  - CARDIAC FAILURE [None]
  - INFECTION [None]
  - NEUTROPENIA [None]
  - PNEUMONIA [None]
  - THROMBOCYTOPENIA [None]
